FAERS Safety Report 9441727 (Version 2)
Quarter: 2013Q4

REPORT INFORMATION
  Report Type: Report from Study
  Country: JP (occurrence: JP)
  Receive Date: 20130806
  Receipt Date: 20131219
  Transmission Date: 20140711
  Serious: Yes (Death, Life-Threatening, Other)
  Sender: FDA-Public Use
  Company Number: JP-PFIZER INC-2013225325

PATIENT
  Age: 75 Year
  Sex: Male
  Weight: 63 kg

DRUGS (19)
  1. ADRIACIN [Suspect]
     Indication: NEOPLASM MALIGNANT
     Dosage: UNK
     Route: 042
     Dates: start: 20130128, end: 20130128
  2. ADRIACIN [Suspect]
     Dosage: UNK
     Route: 042
     Dates: start: 20130218, end: 20130218
  3. ADRIACIN [Suspect]
     Dosage: UNK
     Route: 042
     Dates: start: 20130311, end: 20130311
  4. POTELIGEO [Suspect]
     Indication: ADULT T-CELL LYMPHOMA/LEUKAEMIA
     Dosage: 1 MG/KG, WEEKLY
     Route: 048
     Dates: start: 20121210, end: 20130107
  5. POTELIGEO [Suspect]
     Dosage: 1 MG, 1X/DAY
     Route: 048
     Dates: start: 20130122, end: 20130122
  6. CYCLOPHOSPHAMIDE [Suspect]
     Route: 042
  7. ONCOVIN [Suspect]
     Route: 042
  8. PREDNISOLONE [Concomitant]
     Dosage: UNK
     Dates: start: 20121210, end: 20130122
  9. ACETAMINOPHEN [Concomitant]
     Dosage: UNK
     Dates: start: 20121210, end: 20130122
  10. GASTER D [Concomitant]
     Dosage: UNK
     Dates: start: 20121210, end: 20130122
  11. ALLELOCK OD [Concomitant]
     Dosage: UNK
     Dates: start: 20121210, end: 20130122
  12. BAKTAR [Concomitant]
     Dosage: UNK
     Route: 048
     Dates: start: 20121119
  13. ITRIZOLE [Concomitant]
     Dosage: UNK
     Dates: start: 20121119
  14. ISCOTIN [Concomitant]
     Dosage: UNK
     Route: 048
     Dates: start: 20121119
  15. ACTONEL [Concomitant]
     Dosage: UNK
     Dates: start: 20121213
  16. FEBURIC [Concomitant]
     Dosage: UNK
     Dates: start: 20121213
  17. NU LOTAN [Concomitant]
  18. PARIET [Concomitant]
  19. PYDOXAL [Concomitant]
     Dosage: UNK
     Dates: start: 20121213

REACTIONS (6)
  - Pneumonia aspiration [Fatal]
  - Disease progression [Fatal]
  - Neoplasm malignant [Fatal]
  - Pancytopenia [Recovered/Resolved]
  - Hepatic enzyme increased [Recovered/Resolved]
  - Gamma-glutamyltransferase increased [Recovered/Resolved]
